FAERS Safety Report 14617507 (Version 2)
Quarter: 2018Q2

REPORT INFORMATION
  Report Type: Spontaneous
  Country: JP (occurrence: JP)
  Receive Date: 20180309
  Receipt Date: 20180409
  Transmission Date: 20180711
  Serious: Yes (Hospitalization)
  Sender: FDA-Public Use
  Company Number: JP-ELI_LILLY_AND_COMPANY-JP201803001939

PATIENT
  Age: 75 Year
  Sex: Male

DRUGS (8)
  1. NESINA [Concomitant]
     Active Substance: ALOGLIPTIN BENZOATE
     Dosage: UNK
  2. FORTEO [Suspect]
     Active Substance: TERIPARATIDE
     Indication: OSTEOPOROSIS
     Dosage: 20 UG, DAILY
     Route: 058
     Dates: start: 2016, end: 20180217
  3. MAGNESIUM OXIDE. [Concomitant]
     Active Substance: MAGNESIUM OXIDE
  4. AMARYL [Concomitant]
     Active Substance: GLIMEPIRIDE
  5. MECOBALAMIN [Concomitant]
     Active Substance: METHYLCOBALAMIN
  6. EDIROL [Concomitant]
     Active Substance: ELDECALCITOL
  7. SHAKUYAKUKANZOTO [Concomitant]
     Active Substance: HERBALS
  8. BASEN                              /01290601/ [Concomitant]
     Active Substance: VOGLIBOSE
     Dosage: UNK

REACTIONS (2)
  - Hepatic function abnormal [Recovered/Resolved]
  - Femoral neck fracture [Unknown]

NARRATIVE: CASE EVENT DATE: 20180217
